FAERS Safety Report 10104021 (Version 1)
Quarter: 2014Q2

REPORT INFORMATION
  Report Type: Spontaneous
  Country: FR (occurrence: FR)
  Receive Date: 20140424
  Receipt Date: 20140424
  Transmission Date: 20141212
  Serious: Yes (Hospitalization, Disabling)
  Sender: FDA-Public Use
  Company Number: FR-WATSON-2014-08235

PATIENT
  Age: 40 Year
  Sex: Female

DRUGS (2)
  1. CIPROFLOXACINE ARROW [Suspect]
     Indication: PNEUMONIA
     Dosage: 500 MG, BID
     Route: 048
     Dates: start: 20140324, end: 20140331
  2. CIPROFLOXACIN HYDROCHLORIDE (UNKNOWN) [Suspect]
     Indication: PNEUMONIA
     Dosage: 400 MG, DAILY
     Route: 042
     Dates: start: 20140322, end: 20140323

REACTIONS (3)
  - Tendonitis [Recovering/Resolving]
  - Tendon pain [Recovering/Resolving]
  - Arthralgia [Recovering/Resolving]
